FAERS Safety Report 23301541 (Version 1)
Quarter: 2023Q4

REPORT INFORMATION
  Report Type: Spontaneous
  Country: US (occurrence: US)
  Receive Date: 20231215
  Receipt Date: 20231215
  Transmission Date: 20240110
  Serious: No
  Sender: FDA-Public Use
  Company Number: US-JNJFOC-20231151651

PATIENT

DRUGS (1)
  1. CHILDRENS ZYRTEC ALLERGY [Suspect]
     Active Substance: CETIRIZINE HYDROCHLORIDE
     Indication: Product used for unknown indication
     Route: 048

REACTIONS (5)
  - Tongue discomfort [Unknown]
  - Dysgeusia [Recovered/Resolved]
  - Product taste abnormal [Unknown]
  - Product solubility abnormal [Unknown]
  - Product use in unapproved indication [Unknown]
